FAERS Safety Report 22525507 (Version 1)
Quarter: 2023Q2

REPORT INFORMATION
  Report Type: Spontaneous
  Country: KR (occurrence: KR)
  Receive Date: 20230606
  Receipt Date: 20230606
  Transmission Date: 20230722
  Serious: No
  Sender: FDA-Public Use
  Company Number: KR-PFIZER INC-PV202300098149

PATIENT
  Age: 10 Year
  Sex: Male

DRUGS (1)
  1. GENOTROPIN [Suspect]
     Active Substance: SOMATROPIN
     Indication: Short stature
     Dosage: 4 IU, 7 TIMES PER WEEK
     Dates: start: 20230508

REACTIONS (2)
  - Poor quality device used [Unknown]
  - Device leakage [Unknown]
